FAERS Safety Report 5070404-5 (Version None)
Quarter: 2006Q3

REPORT INFORMATION
  Report Type: 
  Country: None (occurrence: None)
  Receive Date: 20060714
  Receipt Date: 20060413
  Transmission Date: 20061208
  Serious: No
  Sender: FDA-Public Use
  Company Number: 2006SP001681

PATIENT
  Age: 85 Year
  Sex: Male
  Weight: 86.1834 kg

DRUGS (3)
  1. LUNESTA [Suspect]
     Indication: INITIAL INSOMNIA
     Dosage: 2 MG;HG;ORAL
     Route: 048
     Dates: start: 20060301, end: 20060401
  2. PLAVIX [Concomitant]
  3. CITALOPRAM [Concomitant]

REACTIONS (1)
  - INITIAL INSOMNIA [None]
